FAERS Safety Report 14235855 (Version 2)
Quarter: 2018Q1

REPORT INFORMATION
  Report Type: Report from Study
  Country: IE (occurrence: IE)
  Receive Date: 20171129
  Receipt Date: 20180223
  Transmission Date: 20180508
  Serious: Yes (Other)
  Sender: FDA-Public Use
  Company Number: IE-AMGEN-IRLSL2017175451

PATIENT
  Age: 81 Year
  Sex: Female

DRUGS (14)
  1. CALCICHEW D3 FORTE [Concomitant]
     Active Substance: CALCIUM\CHOLECALCIFEROL
     Dosage: 500 MG, BID
     Route: 050
  2. ATORVASTATIN TEVA [Concomitant]
     Active Substance: ATORVASTATIN
     Dosage: 20 MG, QD
     Route: 050
  3. MONTELUKAST TEVA [Concomitant]
     Active Substance: MONTELUKAST SODIUM
     Dosage: 30 MG, QD
     Route: 050
  4. MONTELUKAST TEVA [Concomitant]
     Active Substance: MONTELUKAST SODIUM
     Dosage: 10 UNK, UNK
     Route: 050
  5. ASPIRIN. [Concomitant]
     Active Substance: ASPIRIN
     Dosage: 75 MG, QD
     Route: 050
  6. FUROSEMIDE. [Concomitant]
     Active Substance: FUROSEMIDE
     Dosage: 40 MG, QD
     Route: 050
  7. LANSOPRAZOLE. [Concomitant]
     Active Substance: LANSOPRAZOLE
     Dosage: 30 MG, QD
     Route: 050
  8. COVERSYL [Concomitant]
     Active Substance: PERINDOPRIL
     Dosage: 10 MG, QD
     Route: 050
  9. BISOPROLOL [Concomitant]
     Active Substance: BISOPROLOL
     Dosage: 5 MG, QD
     Route: 050
  10. TRAJENTA [Concomitant]
     Active Substance: LINAGLIPTIN
     Dosage: 5 MG, QD
     Route: 050
  11. DESUNIN [Concomitant]
     Active Substance: CHOLECALCIFEROL
     Dosage: 800 UNIT, QD
     Route: 050
  12. GALFER [Concomitant]
     Active Substance: IRON
     Dosage: 305 MG, QD
     Route: 050
  13. ARANESP [Suspect]
     Active Substance: DARBEPOETIN ALFA
     Indication: CHRONIC KIDNEY DISEASE
     Dosage: 30 MUG, QMO
     Route: 058
     Dates: start: 20171025
  14. AMLODIPINE [Concomitant]
     Active Substance: AMLODIPINE BESYLATE
     Dosage: 5 MG, QD
     Route: 050

REACTIONS (2)
  - Haemoglobin abnormal [Not Recovered/Not Resolved]
  - Lower respiratory tract infection [Not Recovered/Not Resolved]

NARRATIVE: CASE EVENT DATE: 20171115
